FAERS Safety Report 5962234-4 (Version None)
Quarter: 2008Q4

REPORT INFORMATION
  Report Type: 
  Country: None (occurrence: None)
  Receive Date: 20081121
  Receipt Date: 20081119
  Transmission Date: 20090506
  Serious: Yes (Hospitalization, Other)
  Sender: FDA-Public Use
  Company Number: JP-B.I. PHARMACEUTICALS,INC./RIDGEFIELD-2008-BP-13011NB

PATIENT
  Sex: Female
  Weight: 66.6 kg

DRUGS (2)
  1. MICARDIS [Suspect]
     Indication: HYPERTENSION
     Dosage: 40MG
     Route: 048
     Dates: start: 20060627, end: 20080421
  2. ACTOS [Concomitant]
     Dosage: 1 DF
     Route: 048
     Dates: start: 20060301, end: 20080401

REACTIONS (1)
  - BREAST CANCER RECURRENT [None]
